FAERS Safety Report 15803182 (Version 1)
Quarter: 2019Q1

REPORT INFORMATION
  Report Type: Spontaneous
  Country: GB (occurrence: GB)
  Receive Date: 20190109
  Receipt Date: 20190109
  Transmission Date: 20190417
  Serious: Yes (Life-Threatening, Hospitalization, Other)
  Sender: FDA-Public Use
  Company Number: GB-PFIZER INC-2019009511

PATIENT
  Age: 49 Year
  Sex: Male

DRUGS (6)
  1. CASSIA SENNA [Concomitant]
     Active Substance: HERBALS\SENNOSIDES
     Dosage: 15 MG, 1X/DAY (AT NIGHT)
  2. CHLORPROMAZINE. [Concomitant]
     Active Substance: CHLORPROMAZINE
     Dosage: 150 MG, 1X/DAY (AT NIGHT, 100 MG TABLET AND 50 MG TABLET)
  3. FOSTAIR  NEXTHALER [Concomitant]
     Dosage: 4 DF, DAILY (100 UG / DOSE / 6 UG)
     Route: 055
  4. DESMOPRESSIN [Suspect]
     Active Substance: DESMOPRESSIN
     Dosage: 200 UG, 1X/DAY (AT NIGHT)
  5. SPIRONOLACTONE. [Suspect]
     Active Substance: SPIRONOLACTONE
     Dosage: 25 MG, 1X/DAY (EACH MORNING)
  6. BRALTUS [Concomitant]
     Active Substance: TIOTROPIUM BROMIDE
     Dosage: 10 UG, DAILY
     Route: 055

REACTIONS (2)
  - Hyponatraemia [Recovered/Resolved]
  - Angioedema [Recovered/Resolved]
